FAERS Safety Report 6160630-6 (Version None)
Quarter: 2009Q2

REPORT INFORMATION
  Report Type: 
  Country: None (occurrence: None)
  Receive Date: 20090416
  Receipt Date: 20090407
  Transmission Date: 20091009
  Serious: Yes (Hospitalization, Other)
  Sender: FDA-Public Use
  Company Number: 191447USA

PATIENT
  Age: 54 Year
  Sex: Female

DRUGS (16)
  1. BISOPROLOL FUMARATE [Suspect]
     Dosage: ORAL
     Route: 048
  2. BENFLUOREX HYDROCHLORIDE [Suspect]
     Indication: WEIGHT CONTROL
     Dosage: 2-3 DOSAGE FORMS PER DAY (150 MG), ORAL
     Route: 048
     Dates: start: 20070901, end: 20081201
  3. VENLAFAXINE HCL [Suspect]
     Indication: DEPRESSION
     Dosage: ORAL
     Route: 048
     Dates: start: 20010101
  4. RAMIPRIL [Suspect]
     Dosage: ORAL
     Route: 048
  5. FUROSEMIDE [Suspect]
     Dosage: ORAL
     Route: 048
  6. DIGOXIN [Suspect]
     Dosage: ORAL
     Route: 048
  7. HYDROXYZINE [Suspect]
     Dosage: ORAL
     Route: 048
  8. MONTELUKAST [Concomitant]
  9. CLORAZEPATE DIPOTASSIUM [Concomitant]
  10. AMITRIPTYLINE HYDROCHLORIDE [Concomitant]
  11. LANSOPRAZOLE [Concomitant]
  12. AMITRIPTYLINE HYDROCHLORIDE [Concomitant]
  13. BISOPROLOL FUMARATE [Concomitant]
  14. CANDESARTAN CILEXETIL [Concomitant]
  15. ACETYLSALICYLATE LYSINE [Concomitant]
  16. PRAVASTATIN SODIUM [Concomitant]

REACTIONS (8)
  - AORTIC VALVE INCOMPETENCE [None]
  - CARDIOMYOPATHY [None]
  - LEFT VENTRICULAR DYSFUNCTION [None]
  - MITRAL VALVE INCOMPETENCE [None]
  - TACHYCARDIA [None]
  - TRANSIENT ISCHAEMIC ATTACK [None]
  - TRICUSPID VALVE INCOMPETENCE [None]
  - VENTRICULAR HYPOKINESIA [None]
